FAERS Safety Report 10023948 (Version 1)
Quarter: 2014Q1

REPORT INFORMATION
  Report Type: Spontaneous
  Country: FI (occurrence: FI)
  Receive Date: 20140320
  Receipt Date: 20140320
  Transmission Date: 20141002
  Serious: Yes (Death, Other)
  Sender: FDA-Public Use
  Company Number: FI-ASTRAZENECA-2014SE18878

PATIENT
  Age: 70 Year
  Sex: Male

DRUGS (1)
  1. BRILIQUE [Suspect]
     Indication: ACUTE CORONARY SYNDROME
     Dosage: 180 MG LOADING DOSE
     Route: 048

REACTIONS (2)
  - Myocardial infarction [Fatal]
  - Cerebrovascular accident [Unknown]
